FAERS Safety Report 5248435-1 (Version None)
Quarter: 2007Q1

REPORT INFORMATION
  Report Type: 
  Country: None (occurrence: None)
  Receive Date: 20070222
  Receipt Date: 20070207
  Transmission Date: 20070707
  Serious: Yes (Other)
  Sender: FDA-Public Use
  Company Number: TRP_0914_2007

PATIENT
  Age: 50 Year
  Sex: Female

DRUGS (3)
  1. RIBASPHERE [Suspect]
     Indication: HEPATITIS C
     Dosage: DF PO
     Route: 048
     Dates: start: 20060303, end: 20061015
  2. PEG-INTRON [Suspect]
     Indication: HEPATITIS C
     Dosage: DF SC
     Route: 058
     Dates: start: 20060303, end: 20061015
  3. DARVOCET-N 100 [Concomitant]

REACTIONS (8)
  - BURNING SENSATION [None]
  - DEPRESSION [None]
  - DYSPNOEA [None]
  - HYPOAESTHESIA [None]
  - INJECTION SITE MASS [None]
  - LUNG DISORDER [None]
  - MOOD SWINGS [None]
  - SUICIDAL IDEATION [None]
